FAERS Safety Report 9663899 (Version 1)
Quarter: 2013Q4

REPORT INFORMATION
  Report Type: Spontaneous
  Country: US (occurrence: US)
  Receive Date: 20131101
  Receipt Date: 20131101
  Transmission Date: 20140711
  Serious: Yes (Hospitalization, Other)
  Sender: FDA-Public Use
  Company Number: CHPA2013US016257

PATIENT
  Age: 78 Year
  Sex: Male

DRUGS (6)
  1. MAALOX UNKNOWN [Suspect]
     Indication: GASTRIC ULCER HAEMORRHAGE
     Dosage: RECOMMENDED DOSAGE
     Route: 048
  2. MAALOX UNKNOWN [Suspect]
     Indication: OFF LABEL USE
  3. ACETYLSALICYLIC ACID [Suspect]
     Dosage: UNK, UNK
     Route: 065
  4. CRESTOR [Concomitant]
     Dosage: UNK, UNK
  5. LIPITOR [Concomitant]
     Dosage: UNK, UNK
  6. MYLANTA                                 /USA/ [Concomitant]
     Indication: GASTRIC ULCER HAEMORRHAGE
     Dosage: UNK, UNK

REACTIONS (7)
  - Gastric ulcer haemorrhage [Not Recovered/Not Resolved]
  - Renal disorder [Not Recovered/Not Resolved]
  - Haematochezia [Not Recovered/Not Resolved]
  - Gait disturbance [Not Recovered/Not Resolved]
  - Pain in extremity [Not Recovered/Not Resolved]
  - Pain [Not Recovered/Not Resolved]
  - Malaise [Not Recovered/Not Resolved]
